FAERS Safety Report 17117537 (Version 3)
Quarter: 2020Q1

REPORT INFORMATION
  Report Type: Spontaneous
  Country: JP (occurrence: JP)
  Receive Date: 20191205
  Receipt Date: 20200127
  Transmission Date: 20200409
  Serious: Yes (Other)
  Sender: FDA-Public Use
  Company Number: JP-JNJFOC-20191126947

PATIENT
  Age: 83 Year
  Sex: Male

DRUGS (2)
  1. ERLEADA [Suspect]
     Active Substance: APALUTAMIDE
     Indication: PRODUCT USED FOR UNKNOWN INDICATION
     Route: 048
     Dates: start: 20190813, end: 20191118
  2. ERLEADA [Suspect]
     Active Substance: APALUTAMIDE
     Dosage: APALUTAMIDE:60 MG
     Route: 048
     Dates: start: 20191217

REACTIONS (2)
  - Rash [Recovered/Resolved]
  - Cellulitis [Recovered/Resolved]

NARRATIVE: CASE EVENT DATE: 20191102
